FAERS Safety Report 20298546 (Version 1)
Quarter: 2022Q1

REPORT INFORMATION
  Report Type: Spontaneous
  Country: US (occurrence: None)
  Receive Date: 20220104
  Receipt Date: 20220104
  Transmission Date: 20220423
  Serious: No
  Sender: FDA-Public Use
  Company Number: None

PATIENT
  Age: 72 Year
  Sex: Male

DRUGS (2)
  1. AMPICILLIN SODIUM [Suspect]
     Active Substance: AMPICILLIN SODIUM
     Indication: Endocarditis
     Route: 042
     Dates: start: 20211105
  2. CEFTRIAXONE SODIUM [Suspect]
     Active Substance: CEFTRIAXONE SODIUM
     Indication: Endocarditis
     Dosage: FREQUENCY : TWICE A DAY;?
     Route: 042
     Dates: start: 20211105, end: 20211217

REACTIONS (4)
  - Neutropenia [None]
  - Pruritus [None]
  - Rash [None]
  - Weight increased [None]

NARRATIVE: CASE EVENT DATE: 20211217
